FAERS Safety Report 4985384-8 (Version None)
Quarter: 2006Q1

REPORT INFORMATION
  Report Type: 
  Country: None (occurrence: None)
  Receive Date: 20060309
  Receipt Date: 20051109
  Transmission Date: 20060701
  Serious: Yes (Other)
  Sender: FDA-Public Use
  Company Number: 424347

PATIENT
  Sex: 0

DRUGS (3)
  1. ACCUTANE [Suspect]
     Indication: ACNE CYSTIC
     Dosage: 40 MG  2 PER DAY  ORAL
     Route: 048
     Dates: start: 20050603, end: 20050924
  2. ORTHO EVRA [Concomitant]
  3. ORTHO TRI-CYCLEN LO (ETHINYL ESTRADIOL/NORGESTIMATE) [Concomitant]

REACTIONS (2)
  - NO ADVERSE EFFECT [None]
  - PREGNANCY [None]
